FAERS Safety Report 4867071-X (Version None)
Quarter: 2005Q4

REPORT INFORMATION
  Report Type: 
  Country: None (occurrence: None)
  Receive Date: 20051222
  Receipt Date: 20051212
  Transmission Date: 20060501
  Serious: Yes (Life-Threatening, Hospitalization)
  Sender: FDA-Public Use
  Company Number: 001#1#2005-02113

PATIENT
  Sex: Female

DRUGS (1)
  1. METOHEXAL SUCC 47.5 MG (METOPROLOL SUCC [Suspect]
     Indication: HYPERTENSION
     Dosage: 47.5 MILLIGRAM P.O.
     Route: 048
     Dates: start: 20050915, end: 20050922

REACTIONS (3)
  - CONDITION AGGRAVATED [None]
  - HYPERTENSION [None]
  - MYOCARDIAL INFARCTION [None]
